FAERS Safety Report 8063995-3 (Version None)
Quarter: 2012Q1

REPORT INFORMATION
  Report Type: 
  Country: None (occurrence: None)
  Receive Date: 20120123
  Receipt Date: 20120113
  Transmission Date: 20120608
  Serious: Yes (Hospitalization)
  Sender: FDA-Public Use
  Company Number: US-ABBOTT-11P-163-0886403-05

PATIENT
  Sex: Female
  Weight: 58 kg

DRUGS (3)
  1. MERCAPTOPURINE [Concomitant]
     Indication: CROHN'S DISEASE
     Route: 048
     Dates: start: 20070416
  2. HUMIRA [Suspect]
     Indication: CROHN'S DISEASE
     Route: 058
     Dates: start: 20080904
  3. NORTREL 7/7/7 [Concomitant]
     Indication: CONTRACEPTION
     Dates: start: 20111202

REACTIONS (2)
  - VIRAL INFECTION [None]
  - STOMATITIS [None]
